FAERS Safety Report 9571002 (Version 2)
Quarter: 2013Q4

REPORT INFORMATION
  Report Type: Report from Study
  Country: IT (occurrence: IT)
  Receive Date: 20131001
  Receipt Date: 20131007
  Transmission Date: 20140711
  Serious: Yes (Life-Threatening, Hospitalization, Disabling, Other)
  Sender: FDA-Public Use
  Company Number: IT-SHIRE-ALL1-2013-06465

PATIENT
  Age: 15 Year
  Sex: Male
  Weight: 45.5 kg

DRUGS (9)
  1. IDURSULFASE [Suspect]
     Indication: MUCOPOLYSACCHARIDOSIS II
     Dosage: 0.5 MG/KG, 1X/WEEK
     Route: 041
     Dates: start: 20040116
  2. RANTIDINE [Concomitant]
     Indication: GASTROINTESTINAL DISORDER
     Dosage: 7.5 ML, 2X/DAY:BID
     Route: 048
     Dates: start: 20100416
  3. VITAMIN D3 [Concomitant]
     Indication: RENAL DISORDER
     Dosage: 5 ML, 2X/DAY:BID
     Route: 048
     Dates: start: 20100416
  4. PREDNISONE [Concomitant]
     Indication: RENAL DISORDER
     Dosage: 60 MG, 1X/DAY:QD
     Route: 048
     Dates: start: 20100416
  5. RAMIPRIL [Concomitant]
     Indication: RENAL DISORDER
     Dosage: 2.5 MG, 1X/DAY:QD
     Route: 048
     Dates: start: 201003
  6. ALBUMIN [Concomitant]
     Indication: OEDEMA PERIPHERAL
     Dosage: 1000 MG/KG, 1X/DAY:QD
     Route: 042
     Dates: start: 20100121
  7. FUROSEMIDE [Concomitant]
     Indication: OEDEMA PERIPHERAL
     Dosage: 500 MG/KG, 1X/DAY:QD
     Route: 042
     Dates: start: 20100121
  8. LATANOPROST [Concomitant]
     Indication: GLAUCOMA
     Dosage: UNK UNK, UNKNOWN
     Route: 065
     Dates: start: 20021022
  9. CYCLOSPORIN [Concomitant]
     Indication: GLOMERULONEPHRITIS
     Dosage: UNK, UNKNOWN
     Route: 065

REACTIONS (5)
  - Spinal cord compression [Unknown]
  - Pneumonia [Unknown]
  - Dysphagia [Unknown]
  - Aspiration [Unknown]
  - Respiratory failure [Unknown]
